FAERS Safety Report 5858093-0 (Version None)
Quarter: 2008Q3

REPORT INFORMATION
  Report Type: 
  Country: None (occurrence: None)
  Receive Date: 20080818
  Receipt Date: 20080603
  Transmission Date: 20090109
  Serious: No
  Sender: FDA-Public Use
  Company Number: WAES 0806USA00674

PATIENT
  Age: 67 Year
  Sex: Male

DRUGS (14)
  1. JANUVIA [Suspect]
     Indication: TYPE 2 DIABETES MELLITUS
     Dosage: 100 MG/DAILY/PO
     Route: 048
     Dates: start: 20080501, end: 20080501
  2. ABILIFY [Concomitant]
  3. ACTOPLUS MET [Concomitant]
  4. ADDERALL TABLETS [Concomitant]
  5. LIPITOR [Concomitant]
  6. MIRALAX [Concomitant]
  7. SEROQUEL [Concomitant]
  8. TOPROL-XL [Concomitant]
  9. TYLENOL (CAPLET) [Concomitant]
  10. ASPIRIN [Concomitant]
  11. CALCIUM (UNSPECIFIED) [Concomitant]
  12. FUROSEMIDE [Concomitant]
  13. IPRATROPIUM BROMIDE [Concomitant]
  14. TRAZODONE HCL [Concomitant]

REACTIONS (2)
  - INSOMNIA [None]
  - MANIA [None]
